FAERS Safety Report 25104992 (Version 1)
Quarter: 2025Q1

REPORT INFORMATION
  Report Type: Spontaneous
  Country: US (occurrence: None)
  Receive Date: 20250320
  Receipt Date: 20250320
  Transmission Date: 20250408
  Serious: Yes (Hospitalization)
  Sender: FDA-CTU
  Company Number: None

PATIENT
  Age: 77 Year
  Sex: Male

DRUGS (1)
  1. DABIGATRAN ETEXILATE [Suspect]
     Active Substance: DABIGATRAN ETEXILATE
     Indication: Atrial fibrillation

REACTIONS (6)
  - Nephrectomy [None]
  - Postoperative ileus [None]
  - Post procedural haemorrhage [None]
  - Renal haemorrhage [None]
  - Arterial haemorrhage [None]
  - Procedural haemorrhage [None]

NARRATIVE: CASE EVENT DATE: 20250227
